FAERS Safety Report 22632161 (Version 7)
Quarter: 2024Q2

REPORT INFORMATION
  Report Type: Report from Study
  Country: US (occurrence: US)
  Receive Date: 20230623
  Receipt Date: 20240407
  Transmission Date: 20240716
  Serious: Yes (Hospitalization, Other)
  Sender: FDA-Public Use
  Company Number: US-ACADIA PHARMACEUTICALS INC.-ACA-2023-TRF-002145

PATIENT
  Age: 2 Year
  Sex: Female

DRUGS (2)
  1. DAYBUE [Suspect]
     Active Substance: TROFINETIDE
     Indication: Rett syndrome
     Dosage: 25 MILLILITER, BID
     Route: 048
  2. DAYBUE [Suspect]
     Active Substance: TROFINETIDE
     Dosage: 25 MILLILITER, BID
     Route: 048
     Dates: start: 20230708

REACTIONS (16)
  - Gastrostomy [Not Recovered/Not Resolved]
  - Product storage error [Not Recovered/Not Resolved]
  - Drooling [Not Recovered/Not Resolved]
  - Rash [Recovered/Resolved]
  - Drooling [Unknown]
  - Sleep disorder [Unknown]
  - Weight gain poor [Not Recovered/Not Resolved]
  - Somnolence [Not Recovered/Not Resolved]
  - Abnormal behaviour [Not Recovered/Not Resolved]
  - Ear infection [Unknown]
  - Pharyngitis streptococcal [Unknown]
  - Screaming [Unknown]
  - Fungal infection [Unknown]
  - Abnormal faeces [Unknown]
  - Refusal of treatment by patient [Unknown]
  - Diarrhoea [Not Recovered/Not Resolved]

NARRATIVE: CASE EVENT DATE: 20230705
